FAERS Safety Report 4725759-5 (Version None)
Quarter: 2005Q3

REPORT INFORMATION
  Report Type: 
  Country: None (occurrence: None)
  Receive Date: 20050727
  Receipt Date: 20050221
  Transmission Date: 20060218
  Serious: No
  Sender: FDA-Public Use
  Company Number: PHRM2005FR00906

PATIENT
  Age: 37 Year
  Sex: Male
  Weight: 66 kg

DRUGS (1)
  1. LAMISIL [Suspect]
     Indication: NAIL TINEA
     Dosage: 250 MG, QD
     Route: 048
     Dates: start: 20040801

REACTIONS (1)
  - HYPOKALAEMIA [None]
